FAERS Safety Report 4583157-1 (Version None)
Quarter: 2005Q1

REPORT INFORMATION
  Report Type: 
  Country: None (occurrence: None)
  Receive Date: 20050125
  Receipt Date: 20041116
  Transmission Date: 20050727
  Serious: No
  Sender: FDA-Public Use
  Company Number: USA041184017

PATIENT
  Age: 78 Year
  Sex: Female

DRUGS (4)
  1. FORTEO [Suspect]
     Indication: OSTEOPOROSIS
     Dosage: 20 UG/1 DAY
     Dates: start: 20041101
  2. PREDNISONE [Concomitant]
  3. IMURAN [Concomitant]
  4. ZITHROMAX [Concomitant]

REACTIONS (7)
  - LUNG INFECTION [None]
  - NASOPHARYNGITIS [None]
  - NERVOUSNESS [None]
  - PRODUCTIVE COUGH [None]
  - RESPIRATORY TRACT CONGESTION [None]
  - STRESS [None]
  - SWELLING FACE [None]
